FAERS Safety Report 6333482-9 (Version None)
Quarter: 2009Q3

REPORT INFORMATION
  Report Type: 
  Country: None (occurrence: None)
  Receive Date: 20090828
  Receipt Date: 20090819
  Transmission Date: 20100115
  Serious: Yes (Death, Hospitalization)
  Sender: FDA-Public Use
  Company Number: FR-GILEAD-2009-0019780

PATIENT
  Sex: Male
  Weight: 46 kg

DRUGS (22)
  1. TRUVADA [Suspect]
     Indication: HIV INFECTION
     Dates: start: 20081223, end: 20090104
  2. EMTRIVA [Suspect]
     Indication: HIV INFECTION
     Dates: start: 20090104, end: 20090123
  3. KALETRA [Suspect]
     Indication: HIV INFECTION
     Route: 048
     Dates: start: 20081223, end: 20090123
  4. KALETRA [Suspect]
     Dates: start: 20090310
  5. FUZEON [Suspect]
     Indication: HIV INFECTION
     Route: 058
     Dates: start: 20081223, end: 20090123
  6. FUZEON [Suspect]
     Dates: start: 20090310
  7. KIVEXA [Suspect]
     Indication: HIV INFECTION
     Dates: start: 20090310
  8. CORTANCYL [Suspect]
     Indication: IMMUNE RECONSTITUTION SYNDROME
     Dates: start: 20090120
  9. CORTANCYL [Suspect]
     Dates: start: 20050326
  10. ZECLAR [Concomitant]
     Indication: MYCOBACTERIUM AVIUM COMPLEX INFECTION
     Dates: start: 20081107
  11. FOLINORAL [Concomitant]
     Indication: SUPPLEMENTATION THERAPY
     Dates: start: 20081121
  12. TRIFLUCAN [Concomitant]
     Indication: FUNGAL INFECTION
     Dates: start: 20090102
  13. ANSATIPINE [Concomitant]
     Indication: MYCOBACTERIUM AVIUM COMPLEX INFECTION
     Dates: start: 20081223
  14. ANSATIPINE [Concomitant]
     Dates: start: 20090216
  15. MYAMBUTOL [Concomitant]
     Indication: MYCOBACTERIUM AVIUM COMPLEX INFECTION
     Dates: start: 20081107
  16. MYAMBUTOL [Concomitant]
     Dates: start: 20090214
  17. BACTRIM [Concomitant]
     Indication: ANTIFUNGAL PROPHYLAXIS
     Dates: start: 20081121
  18. ROVALCYTE [Concomitant]
     Indication: CYTOMEGALOVIRUS TEST
     Dates: start: 20090213
  19. OFLOCET [Concomitant]
     Dates: start: 20090214
  20. RIMIFON [Concomitant]
     Indication: MYCOBACTERIUM AVIUM COMPLEX INFECTION
  21. NICARDIPINE HCL [Concomitant]
     Indication: HYPERTENSION
     Dates: start: 20090124
  22. NOVONORM [Concomitant]

REACTIONS (15)
  - ABSCESS [None]
  - ANAEMIA [None]
  - CEREBRAL TOXOPLASMOSIS [None]
  - CHOLESTASIS [None]
  - CONFUSIONAL STATE [None]
  - CONVULSION [None]
  - DISSEMINATED CYTOMEGALOVIRAL INFECTION [None]
  - ENCEPHALITIS CYTOMEGALOVIRUS [None]
  - FALL [None]
  - IMMUNE RECONSTITUTION SYNDROME [None]
  - LARGE INTESTINE PERFORATION [None]
  - PYREXIA [None]
  - RENAL FAILURE [None]
  - SEPTIC SHOCK [None]
  - SUBDURAL HAEMATOMA [None]
